FAERS Safety Report 8879678 (Version 1)
Quarter: 2012Q4

REPORT INFORMATION
  Report Type: 
  Country: GB (occurrence: GB)
  Receive Date: 20121031
  Receipt Date: 20121031
  Transmission Date: 20130627
  Serious: Yes (Other)
  Sender: FDA-Public Use
  Company Number: GB-GLAXOSMITHKLINE-B0838989A

PATIENT
  Sex: Female

DRUGS (2)
  1. SEROXAT [Suspect]
     Indication: DEPRESSION
     Route: 065
     Dates: end: 2003
  2. ANTIDEPRESSANTS [Concomitant]

REACTIONS (7)
  - Disability [Unknown]
  - Drug withdrawal syndrome [Unknown]
  - Abdominal pain upper [Unknown]
  - Headache [Unknown]
  - Dizziness [Unknown]
  - Flat affect [Unknown]
  - Impaired driving ability [Unknown]
